FAERS Safety Report 7992847-X (Version None)
Quarter: 2011Q4

REPORT INFORMATION
  Report Type: 
  Country: None (occurrence: None)
  Receive Date: 20111219
  Receipt Date: 20110422
  Transmission Date: 20120403
  Serious: No
  Sender: FDA-Public Use
  Company Number: US-ASTRAZENECA-2011SE23271

PATIENT
  Sex: Female

DRUGS (1)
  1. CRESTOR [Suspect]
     Route: 048
     Dates: start: 20100701

REACTIONS (8)
  - EPISTAXIS [None]
  - VOMITING [None]
  - HEADACHE [None]
  - BEDRIDDEN [None]
  - DIARRHOEA [None]
  - ABDOMINAL PAIN [None]
  - HAEMATOCHEZIA [None]
  - NAUSEA [None]
